FAERS Safety Report 12806476 (Version 1)
Quarter: 2016Q4

REPORT INFORMATION
  Report Type: Spontaneous
  Country: US (occurrence: US)
  Receive Date: 20161004
  Receipt Date: 20161004
  Transmission Date: 20170207
  Serious: No
  Sender: FDA-Public Use
  Company Number: None

PATIENT
  Age: 78 Year
  Sex: Female
  Weight: 76.2 kg

DRUGS (18)
  1. LOSARTAN. [Concomitant]
     Active Substance: LOSARTAN
  2. FISH OIL [Concomitant]
     Active Substance: FISH OIL
  3. ASA [Concomitant]
     Active Substance: ASPIRIN
  4. PROLIA [Suspect]
     Active Substance: DENOSUMAB
     Indication: OSTEOPENIA
     Dosage: 1CC 1 Q 6 MONTHS SUBCUTANEOUS INJECTION
     Route: 058
     Dates: start: 20160830
  5. LEVOTHYROXINE. [Concomitant]
     Active Substance: LEVOTHYROXINE
  6. VITAMIN D [Concomitant]
     Active Substance: CHOLECALCIFEROL
  7. PROLIA [Suspect]
     Active Substance: DENOSUMAB
     Indication: OSTEOPOROSIS
     Dosage: 1CC 1 Q 6 MONTHS SUBCUTANEOUS INJECTION
     Route: 058
     Dates: start: 20160830
  8. LANSOPRAZOLE. [Concomitant]
     Active Substance: LANSOPRAZOLE
  9. LANTUS [Concomitant]
     Active Substance: INSULIN GLARGINE
  10. NOVOLOG [Concomitant]
     Active Substance: INSULIN ASPART
  11. LATANOPROST. [Concomitant]
     Active Substance: LATANOPROST
  12. VYTORIN [Concomitant]
     Active Substance: EZETIMIBE\SIMVASTATIN
  13. MVI [Concomitant]
     Active Substance: VITAMINS
  14. SULFASALAZINE. [Concomitant]
     Active Substance: SULFASALAZINE
  15. METOPROLOL. [Concomitant]
     Active Substance: METOPROLOL
  16. AMLODIPINE [Concomitant]
     Active Substance: AMLODIPINE BESYLATE
  17. MAGNESIUM [Concomitant]
     Active Substance: MAGNESIUM
  18. CALCIUM [Concomitant]
     Active Substance: CALCIUM

REACTIONS (5)
  - Muscle spasms [None]
  - Back pain [None]
  - Pain in extremity [None]
  - Muscle twitching [None]
  - Arthralgia [None]

NARRATIVE: CASE EVENT DATE: 20160901
